FAERS Safety Report 8135592-2 (Version None)
Quarter: 2012Q1

REPORT INFORMATION
  Report Type: 
  Country: None (occurrence: None)
  Receive Date: 20120214
  Receipt Date: 20120208
  Transmission Date: 20120608
  Serious: Yes (Other)
  Sender: FDA-Public Use
  Company Number: CN-JNJFOC-20120205294

PATIENT
  Age: 57 Year
  Sex: Male

DRUGS (2)
  1. NIZORAL [Suspect]
     Indication: TINEA VERSICOLOUR
     Route: 048
     Dates: start: 20120205, end: 20120207
  2. AN UNKNOWN MEDICATION [Suspect]
     Indication: TINEA VERSICOLOUR
     Route: 048
     Dates: start: 20120201

REACTIONS (2)
  - PRURITUS [None]
  - PENILE OEDEMA [None]
